FAERS Safety Report 5796570-1 (Version None)
Quarter: 2008Q2

REPORT INFORMATION
  Report Type: 
  Country: None (occurrence: None)
  Receive Date: 20080627
  Receipt Date: 20080623
  Transmission Date: 20081010
  Serious: Yes (Other)
  Sender: FDA-Public Use
  Company Number: CHPA2008US10431

PATIENT
  Sex: Female

DRUGS (1)
  1. TRANSDERM SCOP [Suspect]
     Dosage: 1.5 MG, TRANSDERMAL
     Route: 062

REACTIONS (5)
  - ANOREXIA [None]
  - DISORIENTATION [None]
  - DRY MOUTH [None]
  - HALLUCINATION [None]
  - WEIGHT DECREASED [None]
